FAERS Safety Report 8737438 (Version 2)
Quarter: 2012Q4

REPORT INFORMATION
  Report Type: 
  Country: US (occurrence: US)
  Receive Date: 20120822
  Receipt Date: 20120827
  Transmission Date: 20130627
  Serious: Yes (Other)
  Sender: FDA-Public Use
  Company Number: US-BMSGILMSD-2012-0059805

PATIENT
  Age: 49 Year
  Sex: Male

DRUGS (2)
  1. ATRIPLA [Suspect]
     Indication: HIV INFECTION
  2. COTRIMOXAZOLE [Suspect]
     Indication: PRODUCT USED FOR UNKNOWN INDICATION

REACTIONS (4)
  - Pigmentation disorder [Not Recovered/Not Resolved]
  - Rash papular [Recovering/Resolving]
  - Skin depigmentation [Not Recovered/Not Resolved]
  - Drug eruption [Recovering/Resolving]
